FAERS Safety Report 12444338 (Version 1)
Quarter: 2016Q2

REPORT INFORMATION
  Report Type: Spontaneous
  Country: US (occurrence: US)
  Receive Date: 20160607
  Receipt Date: 20160607
  Transmission Date: 20160815
  Serious: No
  Sender: FDA-Public Use
  Company Number: US-SA-2016SA071251

PATIENT
  Age: 57 Year
  Sex: Female

DRUGS (12)
  1. SOLOSTAR [Concomitant]
     Active Substance: DEVICE
     Dates: start: 20160329, end: 20160329
  2. NOVOLOG [Concomitant]
     Active Substance: INSULIN ASPART
     Dosage: DOSE:8 UNIT(S)
  3. TOUJEO [Suspect]
     Active Substance: INSULIN GLARGINE
     Indication: TYPE 2 DIABETES MELLITUS
     Dosage: DOSE:20 UNIT(S)
     Route: 065
     Dates: start: 20160329, end: 20160329
  4. TOUJEO [Suspect]
     Active Substance: INSULIN GLARGINE
     Indication: TYPE 2 DIABETES MELLITUS
     Dosage: DOSE:30 UNIT(S)
     Route: 065
     Dates: start: 20160330, end: 20160330
  5. SOLOSTAR [Concomitant]
     Active Substance: DEVICE
     Dates: start: 20160330, end: 20160330
  6. LANTUS SOLOSTAR [Concomitant]
     Active Substance: INSULIN GLARGINE
     Dosage: DOSE:20 UNIT(S)
     Dates: end: 201603
  7. SOLOSTAR [Concomitant]
     Active Substance: DEVICE
     Dates: start: 2015
  8. NOVOLOG [Concomitant]
     Active Substance: INSULIN ASPART
     Dosage: DOSE:8 UNIT(S)
  9. SOLOSTAR [Concomitant]
     Active Substance: DEVICE
     Dates: start: 20160331, end: 20160331
  10. LANTUS SOLOSTAR [Concomitant]
     Active Substance: INSULIN GLARGINE
     Dosage: DOSE:35 UNIT(S)
     Dates: start: 2015
  11. SOLOSTAR [Concomitant]
     Active Substance: DEVICE
     Dates: end: 201603
  12. TOUJEO [Suspect]
     Active Substance: INSULIN GLARGINE
     Indication: TYPE 2 DIABETES MELLITUS
     Dosage: DOSE:35 UNIT(S)
     Route: 065
     Dates: start: 20160331, end: 20160331

REACTIONS (1)
  - Blood glucose increased [Unknown]

NARRATIVE: CASE EVENT DATE: 20160329
